FAERS Safety Report 22218530 (Version 1)
Quarter: 2023Q2

REPORT INFORMATION
  Report Type: Spontaneous
  Country: CN (occurrence: CN)
  Receive Date: 20230417
  Receipt Date: 20230417
  Transmission Date: 20230721
  Serious: Yes (Other)
  Sender: FDA-Public Use
  Company Number: CN-VIIV HEALTHCARE ULC-CN2023APC051407

PATIENT

DRUGS (6)
  1. DOLUTEGRAVIR [Suspect]
     Active Substance: DOLUTEGRAVIR
     Indication: HIV infection
     Dosage: 50 MG, 1D
     Route: 048
     Dates: start: 20210506, end: 20210630
  2. DOLUTEGRAVIR [Suspect]
     Active Substance: DOLUTEGRAVIR
     Indication: Acquired immunodeficiency syndrome
  3. LABUVIRTIDE [Suspect]
     Active Substance: LABUVIRTIDE
     Indication: HIV infection
     Dosage: 320 MG, Z (ONCE A DAY: DAY1,2+3 THEN ONCE A WEEK)
     Dates: start: 20210506
  4. LABUVIRTIDE [Suspect]
     Active Substance: LABUVIRTIDE
     Indication: Acquired immunodeficiency syndrome
  5. DIYU SHENGBAI TABLET [Concomitant]
     Indication: Diffuse large B-cell lymphoma stage IV
     Dosage: 0.3 G, TID
     Route: 048
     Dates: start: 2021
  6. RECOMBINANT HUMAN GRANULOCYTE STIMULATING FACTOR INJECTION [Concomitant]
     Indication: Product used for unknown indication
     Dosage: 0.15 MG, 1D
     Route: 058
     Dates: start: 2021

REACTIONS (4)
  - Pathogen resistance [Unknown]
  - Viral mutation identified [Unknown]
  - Blood HIV RNA increased [Recovering/Resolving]
  - Treatment failure [Unknown]

NARRATIVE: CASE EVENT DATE: 20210525
